FAERS Safety Report 11875278 (Version 1)
Quarter: 2015Q4

REPORT INFORMATION
  Report Type: Spontaneous
  Country: US (occurrence: US)
  Receive Date: 20151229
  Receipt Date: 20151229
  Transmission Date: 20160305
  Serious: No
  Sender: FDA-Public Use
  Company Number: US-DRREDDYS-USA/USA/15/0045911

PATIENT
  Age: 30 Year
  Sex: Male
  Weight: 90.26 kg

DRUGS (1)
  1. HABITROL [Suspect]
     Active Substance: NICOTINE
     Indication: SMOKING CESSATION THERAPY
     Route: 061

REACTIONS (3)
  - Expired product administered [Unknown]
  - Arthralgia [Recovered/Resolved]
  - Nicotine dependence [Unknown]

NARRATIVE: CASE EVENT DATE: 20150205
